FAERS Safety Report 10706409 (Version 2)
Quarter: 2015Q3

REPORT INFORMATION
  Report Type: Spontaneous
  Country: JP (occurrence: JP)
  Receive Date: 20150113
  Receipt Date: 20150703
  Transmission Date: 20151125
  Serious: Yes (Other)
  Sender: FDA-Public Use
  Company Number: JP-009507513-1501JPN003131

PATIENT
  Sex: Female

DRUGS (2)
  1. TEMODAL [Suspect]
     Active Substance: TEMOZOLOMIDE
     Indication: MALIGNANT GLIOMA
     Dosage: DAILY DOSAGE UNKNOWN
     Route: 048
     Dates: start: 201401, end: 201412
  2. AVASTIN [Concomitant]
     Active Substance: BEVACIZUMAB
     Dosage: DAILY DOSAGE UNKNOWN
     Route: 065
     Dates: end: 201403

REACTIONS (4)
  - Cerebral infarction [Unknown]
  - Calculus urinary [Unknown]
  - Diarrhoea [Unknown]
  - Pyelonephritis [Unknown]

NARRATIVE: CASE EVENT DATE: 201403
